FAERS Safety Report 23398891 (Version 1)
Quarter: 2024Q1

REPORT INFORMATION
  Report Type: Spontaneous
  Country: JP (occurrence: JP)
  Receive Date: 20240112
  Receipt Date: 20240112
  Transmission Date: 20240410
  Serious: Yes (Other)
  Sender: FDA-Public Use
  Company Number: JP-ONO-2024JP000615

PATIENT
  Age: 55 Year
  Sex: Male

DRUGS (1)
  1. OPDIVO [Suspect]
     Active Substance: NIVOLUMAB
     Indication: Transitional cell carcinoma
     Dosage: UNK
     Route: 041

REACTIONS (3)
  - Lung neoplasm malignant [Unknown]
  - Adrenal insufficiency [Unknown]
  - Hypopituitarism [Unknown]
